FAERS Safety Report 8579510-1 (Version None)
Quarter: 2012Q3

REPORT INFORMATION
  Report Type: 
  Country: None (occurrence: None)
  Receive Date: 20120808
  Receipt Date: 20120803
  Transmission Date: 20120928
  Serious: Yes (Hospitalization)
  Sender: FDA-Public Use
  Company Number: JP-GLAXOSMITHKLINE-B0820820A

PATIENT
  Sex: Male

DRUGS (5)
  1. VALTREX [Suspect]
     Indication: HERPES ZOSTER
     Dosage: 3000MG PER DAY
     Route: 048
     Dates: start: 20120801, end: 20120803
  2. WARFARIN SODIUM [Concomitant]
     Route: 048
  3. FUROSEMIDE [Concomitant]
     Dosage: 10MG PER DAY
     Route: 048
  4. ASPIRIN [Concomitant]
     Route: 048
  5. ROCALTROL [Concomitant]
     Dosage: .25MCG PER DAY
     Route: 048

REACTIONS (4)
  - ENCEPHALOPATHY [None]
  - DEPRESSED LEVEL OF CONSCIOUSNESS [None]
  - NERVOUS SYSTEM DISORDER [None]
  - OVERDOSE [None]
